FAERS Safety Report 4632404-6 (Version None)
Quarter: 2005Q2

REPORT INFORMATION
  Report Type: 
  Country: None (occurrence: None)
  Receive Date: 20050411
  Receipt Date: 20050331
  Transmission Date: 20051028
  Serious: Yes (Hospitalization)
  Sender: FDA-Public Use
  Company Number: JP-BRISTOL-MYERS SQUIBB COMPANY-12915971

PATIENT
  Age: 69 Year
  Sex: Male

DRUGS (2)
  1. BRIPLATIN [Suspect]
     Indication: GASTRIC CANCER
     Route: 042
  2. TS-1 [Suspect]
     Indication: GASTRIC CANCER
     Route: 048

REACTIONS (3)
  - BONE MARROW DEPRESSION [None]
  - INTERSTITIAL LUNG DISEASE [None]
  - SEPSIS [None]
